FAERS Safety Report 7905901-5 (Version None)
Quarter: 2011Q4

REPORT INFORMATION
  Report Type: 
  Country: None (occurrence: None)
  Receive Date: 20111108
  Receipt Date: 20111028
  Transmission Date: 20120403
  Serious: Yes (Other)
  Sender: FDA-Public Use
  Company Number: 2011P1009886

PATIENT

DRUGS (1)
  1. ONDANSETRON [Suspect]
     Dosage: 16 MG;   ;IV
     Route: 042

REACTIONS (4)
  - REFUSAL OF TREATMENT BY PATIENT [None]
  - HEART RATE IRREGULAR [None]
  - ARRHYTHMIA [None]
  - DYSPNOEA [None]
